FAERS Safety Report 24230852 (Version 3)
Quarter: 2024Q4

REPORT INFORMATION
  Report Type: Report from Study
  Country: US (occurrence: US)
  Receive Date: 20240821
  Receipt Date: 20241014
  Transmission Date: 20250115
  Serious: Yes (Hospitalization, Other)
  Sender: PACIRA
  Company Number: US-ORG100016242-2024000533

PATIENT
  Age: 65 Year
  Sex: Male

DRUGS (27)
  1. ZILRETTA [Suspect]
     Active Substance: TRIAMCINOLONE ACETONIDE
     Indication: Osteoarthritis
     Dosage: 32 MG, EVERY 30 DAYS, BOTH KNEES
     Route: 014
     Dates: start: 20231016, end: 20231016
  2. ZILRETTA [Suspect]
     Active Substance: TRIAMCINOLONE ACETONIDE
     Indication: Osteoarthritis
     Dosage: 32 MG, EVERY 30 DAYS, BOTH KNEES
     Route: 014
     Dates: start: 20240117, end: 20240117
  3. ZILRETTA [Suspect]
     Active Substance: TRIAMCINOLONE ACETONIDE
     Indication: Osteoarthritis
     Dosage: 32 MG, EVERY 30 DAYS, BOTH KNEES
     Route: 014
     Dates: start: 20240521, end: 20240521
  4. ZILRETTA [Suspect]
     Active Substance: TRIAMCINOLONE ACETONIDE
     Indication: Osteoarthritis
     Dosage: 32 MG, EVERY 30 DAYS, BOTH KNEES
     Route: 014
     Dates: start: 20240815, end: 20240815
  5. PROTONIX [Concomitant]
     Active Substance: PANTOPRAZOLE SODIUM
     Indication: Product used for unknown indication
     Dosage: ONE TABLET (40 MG) DAILY
     Route: 048
     Dates: start: 20240312
  6. CRESTOR [Concomitant]
     Active Substance: ROSUVASTATIN CALCIUM
     Indication: Cardiomyopathy
     Dosage: 40 MG EVERY MORNING
     Route: 048
     Dates: start: 20240424
  7. FERROUS GLUCONATE [Concomitant]
     Active Substance: FERROUS GLUCONATE
     Indication: Iron deficiency
     Dosage: DAILY
     Route: 048
     Dates: start: 20240424
  8. FLOMAX [Concomitant]
     Active Substance: TAMSULOSIN HYDROCHLORIDE
     Indication: Prostatomegaly
     Dosage: EVERY MORNING
     Route: 048
     Dates: start: 20240411
  9. FLEXERIL [Concomitant]
     Active Substance: CYCLOBENZAPRINE HYDROCHLORIDE
     Indication: Muscle spasms
     Dosage: ONE TABLET THREE TIMES A DAY AS NEEDED
     Route: 048
     Dates: start: 20240409
  10. BUMEX [Concomitant]
     Active Substance: BUMETANIDE
     Indication: Product used for unknown indication
     Dosage: 2 MG TWICE DAILY
     Route: 048
  11. Multivitamin 50 Plus [Concomitant]
     Indication: Product used for unknown indication
     Dosage: 1 TABLET DAILY
     Route: 048
  12. MAGNESIUM OXIDE [Concomitant]
     Active Substance: MAGNESIUM OXIDE
     Indication: Product used for unknown indication
     Dosage: 1 TABLET DAILY
     Route: 048
  13. TYLENOL [Concomitant]
     Active Substance: ACETAMINOPHEN
     Indication: Pain
     Dosage: 650 MG EVERY 6 HOURS AS NEED
     Route: 048
  14. NEURONTIN [Concomitant]
     Active Substance: GABAPENTIN
     Indication: Product used for unknown indication
     Dosage: 400 MG TWICE DAILY
     Route: 048
  15. ASPIRIN [Concomitant]
     Active Substance: ASPIRIN
     Indication: Product used for unknown indication
     Dosage: 400 MG TWICE DAILY
     Route: 048
  16. Incruse Elipta 62.5 mg/ actuation inhaler [Concomitant]
     Indication: Product used for unknown indication
     Dosage: 1 PUFF DAILY
     Route: 050
     Dates: start: 20240815
  17. Potassium chloride 20 mEQ CR tablet [Concomitant]
     Indication: Hypokalaemia
     Dosage: 1 TABLET BY MOUTH TWICE DAILY
     Route: 048
     Dates: start: 20240815
  18. DESYREL [Concomitant]
     Active Substance: TRAZODONE HYDROCHLORIDE
     Indication: Paradoxical insomnia
     Dosage: 1 TABLET BY MOUTH AT BED TIME
     Route: 048
     Dates: start: 20240814
  19. CIALIS [Concomitant]
     Active Substance: TADALAFIL
     Indication: Benign prostatic hyperplasia
     Dosage: 1 TABLET BY MOUTH DAILY
     Route: 048
     Dates: start: 20240813
  20. HUMULIN NOS [Concomitant]
     Active Substance: INSULIN HUMAN
     Indication: Insulin-requiring type 2 diabetes mellitus
     Dosage: 0.25 ML UNDER SKIN UP TO 3 TIMES/DAY BEFORE MEALS
     Route: 058
     Dates: start: 20240808
  21. PLAVIX [Concomitant]
     Active Substance: CLOPIDOGREL BISULFATE
     Indication: Product used for unknown indication
     Dosage: ONE TABLET BY MOUTH, DAILY
     Route: 048
     Dates: start: 20240603
  22. Gvoke HypoPen 1 mg/ 0.2 mL [Concomitant]
     Indication: Hypoglycaemia
     Dosage: 1ML UNDER SKIN AS NEEDED
     Route: 058
     Dates: start: 20240506
  23. CLARITIN [Concomitant]
     Active Substance: LORATADINE
     Indication: Product used for unknown indication
     Dosage: EVERY MORNING
     Route: 048
  24. COENZYME Q10 [Concomitant]
     Active Substance: DIETARY SUPPLEMENT\UBIDECARENONE
     Indication: Product used for unknown indication
     Dosage: 200 MG DAILY
     Route: 048
  25. CANNABIS SATIVA SUBSP. INDICA TOP [Concomitant]
     Active Substance: CANNABIS SATIVA SUBSP. INDICA TOP
     Indication: Psoriatic arthropathy
     Dosage: AS NEEDED
     Route: 065
  26. Golo [Concomitant]
     Indication: Product used for unknown indication
     Dosage: 1 CAPSULE DAILY
     Route: 048
  27. ZYLOPRIM [Concomitant]
     Active Substance: ALLOPURINOL
     Indication: Product used for unknown indication
     Dosage: DAILY
     Route: 048

REACTIONS (5)
  - Clostridium difficile infection [Recovered/Resolved]
  - Quality of life decreased [Recovered/Resolved]
  - Dyspnoea [Not Recovered/Not Resolved]
  - Nausea [Recovered/Resolved]
  - Depressed mood [Not Recovered/Not Resolved]

NARRATIVE: CASE EVENT DATE: 20240319
